FAERS Safety Report 24917051 (Version 1)
Quarter: 2025Q1

REPORT INFORMATION
  Report Type: Spontaneous
  Country: US (occurrence: US)
  Receive Date: 20250203
  Receipt Date: 20250203
  Transmission Date: 20250408
  Serious: Yes (Hospitalization)
  Sender: DR REDDYS
  Company Number: US-DRL-USA-USA/2025/01/001677

PATIENT
  Age: 75 Year
  Sex: Female

DRUGS (6)
  1. QUETIAPINE [Suspect]
     Active Substance: QUETIAPINE
     Indication: Bipolar I disorder
     Dosage: 50 MG AT NIGHT
  2. QUETIAPINE [Suspect]
     Active Substance: QUETIAPINE
     Dosage: 200 MG
  3. RISPERIDONE [Suspect]
     Active Substance: RISPERIDONE
     Indication: Bipolar I disorder
     Dosage: 2 MG DAILY
  4. BUPROPION [Suspect]
     Active Substance: BUPROPION
     Indication: Bipolar I disorder
     Dosage: 100 MG TWICE DAILY
  5. BUPROPION [Suspect]
     Active Substance: BUPROPION
     Dosage: 150 MG TWICE DAILY
  6. WARFARIN [Concomitant]
     Active Substance: WARFARIN
     Indication: Pulmonary embolism

REACTIONS (2)
  - Condition aggravated [Unknown]
  - Drug ineffective [Unknown]
